FAERS Safety Report 15425123 (Version 1)
Quarter: 2018Q4

REPORT INFORMATION
  Report Type: Spontaneous
  Country: US (occurrence: US)
  Receive Date: 20180925
  Receipt Date: 20180925
  Transmission Date: 20190204
  Serious: No
  Sender: FDA-Public Use
  Company Number: US-THERAPEUTICSMD-2018TMD00089

PATIENT
  Age: 62 Year
  Sex: Female

DRUGS (2)
  1. DUAVEE [Concomitant]
     Active Substance: BAZEDOXIFENE ACETATE\ESTROGENS, CONJUGATED
     Dosage: UNK
  2. IMVEXXY [Suspect]
     Active Substance: ESTRADIOL
     Indication: VULVOVAGINAL DRYNESS
     Dosage: UNK AT BEDTIME
     Dates: start: 201807

REACTIONS (2)
  - Off label use [Not Recovered/Not Resolved]
  - Discharge [Recovered/Resolved]

NARRATIVE: CASE EVENT DATE: 201807
